FAERS Safety Report 8624163-7 (Version None)
Quarter: 2012Q3

REPORT INFORMATION
  Report Type: 
  Country: None (occurrence: None)
  Receive Date: 20120827
  Receipt Date: 20120820
  Transmission Date: 20120928
  Serious: No
  Sender: FDA-Public Use
  Company Number: FI-AMGEN-FINSP2012032052

PATIENT
  Age: 62 Year
  Sex: Female

DRUGS (3)
  1. DOCETAXEL [Suspect]
     Indication: METASTASIS
     Dosage: 80 MG/M2, UNK
     Route: 042
     Dates: start: 20120426, end: 20120428
  2. NEULASTA [Suspect]
     Indication: CHEMOTHERAPY
     Dosage: 6 MG, UNK
     Route: 058
     Dates: start: 20120428, end: 20120611
  3. NEUPOGEN [Suspect]
     Indication: CHEMOTHERAPY
     Dosage: UNK
     Dates: start: 20120721, end: 20120727

REACTIONS (17)
  - MYALGIA [None]
  - CANDIDIASIS [None]
  - PAIN IN EXTREMITY [None]
  - BACK PAIN [None]
  - JOINT STIFFNESS [None]
  - DYSPNOEA [None]
  - ABDOMINAL PAIN UPPER [None]
  - STOMATITIS [None]
  - MALAISE [None]
  - HYPOTENSION [None]
  - OEDEMA PERIPHERAL [None]
  - GAIT DISTURBANCE [None]
  - INSOMNIA [None]
  - BONE PAIN [None]
  - MUSCULOSKELETAL STIFFNESS [None]
  - DYSPHAGIA [None]
  - CONSTIPATION [None]
